FAERS Safety Report 7778320-2 (Version None)
Quarter: 2011Q3

REPORT INFORMATION
  Report Type: 
  Country: None (occurrence: None)
  Receive Date: 20110926
  Receipt Date: 20110912
  Transmission Date: 20111222
  Serious: Yes (Hospitalization)
  Sender: FDA-Public Use
  Company Number: US-BAYER-2011-040474

PATIENT
  Age: 48 Year
  Sex: Female
  Weight: 88.435 kg

DRUGS (8)
  1. MULTI-VITAMIN [Concomitant]
     Route: 048
  2. FISH OIL [Concomitant]
  3. SKELAXIN [Concomitant]
     Route: 048
  4. YAZ [Suspect]
     Indication: DYSFUNCTIONAL UTERINE BLEEDING
     Dosage: UNK
     Dates: start: 20080229, end: 20080328
  5. GLUCOSAMINE [Concomitant]
     Dosage: 500 MG, BID
     Route: 048
  6. LEVOTHYROXINE SODIUM [Concomitant]
     Dosage: UNK
     Route: 048
     Dates: start: 20050101
  7. IBUPROFEN [Concomitant]
     Dosage: 600 MG, UNK
     Route: 048
  8. CALCIUM +VIT D [Concomitant]
     Dosage: Q600 MG, QD
     Route: 048

REACTIONS (5)
  - PULMONARY EMBOLISM [None]
  - PAIN [None]
  - DEPRESSION [None]
  - THROMBOSIS [None]
  - INJURY [None]
